FAERS Safety Report 5475708-X (Version None)
Quarter: 2007Q4

REPORT INFORMATION
  Report Type: 
  Country: None (occurrence: None)
  Receive Date: 20071001
  Receipt Date: 20071001
  Transmission Date: 20080405
  Serious: Yes (Other)
  Sender: FDA-Public Use
  Company Number: None

PATIENT
  Age: 67 Year
  Sex: Female
  Weight: 79.3795 kg

DRUGS (2)
  1. ADVIL PM [Suspect]
     Indication: ARTHRALGIA
     Dosage: 2 CAPLETS AT BEDTIME  24 HOURS  PO
     Route: 048
     Dates: start: 20070911, end: 20070911
  2. ADVIL PM [Suspect]
     Indication: BACK PAIN
     Dosage: 2 CAPLETS AT BEDTIME  24 HOURS  PO
     Route: 048
     Dates: start: 20070911, end: 20070911

REACTIONS (2)
  - FEELING ABNORMAL [None]
  - SOMNOLENCE [None]
